FAERS Safety Report 6188031-5 (Version None)
Quarter: 2009Q2

REPORT INFORMATION
  Report Type: 
  Country: None (occurrence: None)
  Receive Date: 20090513
  Receipt Date: 20090504
  Transmission Date: 20091009
  Serious: Yes (Hospitalization)
  Sender: FDA-Public Use
  Company Number: PHHY2009CA11040

PATIENT
  Sex: Female

DRUGS (8)
  1. CLOZARIL [Suspect]
     Indication: SCHIZOPHRENIA
     Dosage: 337.5 MG
     Dates: start: 20050816
  2. CLOZARIL [Suspect]
     Indication: BIPOLAR DISORDER
  3. DIVALPROEX SODIUM [Concomitant]
     Dosage: 250 MG DAILY+ 500 MG BID
  4. ADVAIR HFA [Concomitant]
  5. SPIRIVA [Concomitant]
  6. BENZTROPINE MESYLATE [Concomitant]
     Dosage: 2 MG, TID
  7. ZOPICLONE [Concomitant]
     Dosage: 5 UNK, QHS
  8. OLANZAPINE [Concomitant]
     Dosage: 15 UNK, QHS

REACTIONS (10)
  - ANTIPSYCHOTIC DRUG LEVEL INCREASED [None]
  - ASTHENIA [None]
  - BLOOD CHLORIDE DECREASED [None]
  - BLOOD SODIUM DECREASED [None]
  - CERVICAL VERTEBRAL FRACTURE [None]
  - FALL [None]
  - HIP FRACTURE [None]
  - INFECTION [None]
  - RIB FRACTURE [None]
  - SOMNOLENCE [None]
